FAERS Safety Report 17678316 (Version 1)
Quarter: 2020Q2

REPORT INFORMATION
  Report Type: Report from Study
  Country: US (occurrence: US)
  Receive Date: 20200417
  Receipt Date: 20200417
  Transmission Date: 20200714
  Serious: Yes (Other)
  Sender: FDA-Public Use
  Company Number: US-JNJFOC-20200331167

PATIENT

DRUGS (17)
  1. RISPERIDONE. [Suspect]
     Active Substance: RISPERIDONE
     Indication: PSYCHOTIC SYMPTOM
  2. DOCOSAHEXAENOIC ACID [Suspect]
     Active Substance: DOCONEXENT
     Indication: SCHIZOPHRENIA
  3. TOCOPHEROL [Suspect]
     Active Substance: TOCOPHEROL
     Indication: PSYCHOTIC SYMPTOM
  4. LORAZEPAM. [Concomitant]
     Active Substance: LORAZEPAM
  5. TOCOPHEROL [Suspect]
     Active Substance: TOCOPHEROL
     Indication: BIPOLAR DISORDER
  6. RISPERIDONE. [Suspect]
     Active Substance: RISPERIDONE
     Indication: SCHIZOAFFECTIVE DISORDER
     Route: 065
  7. RISPERIDONE. [Suspect]
     Active Substance: RISPERIDONE
     Indication: BIPOLAR DISORDER
  8. RISPERIDONE. [Suspect]
     Active Substance: RISPERIDONE
     Indication: SCHIZOPHRENIA
  9. EICOSAPENTAENOIC ACID [Suspect]
     Active Substance: ICOSAPENT
     Indication: PSYCHOTIC SYMPTOM
  10. EICOSAPENTAENOIC ACID [Suspect]
     Active Substance: ICOSAPENT
     Indication: SCHIZOAFFECTIVE DISORDER
     Route: 065
  11. EICOSAPENTAENOIC ACID [Suspect]
     Active Substance: ICOSAPENT
     Indication: BIPOLAR DISORDER
  12. EICOSAPENTAENOIC ACID [Suspect]
     Active Substance: ICOSAPENT
     Indication: SCHIZOPHRENIA
  13. DOCOSAHEXAENOIC ACID [Suspect]
     Active Substance: DOCONEXENT
     Indication: BIPOLAR DISORDER
  14. DOCOSAHEXAENOIC ACID [Suspect]
     Active Substance: DOCONEXENT
     Indication: PSYCHOTIC SYMPTOM
  15. DOCOSAHEXAENOIC ACID [Suspect]
     Active Substance: DOCONEXENT
     Indication: SCHIZOAFFECTIVE DISORDER
     Route: 065
  16. TOCOPHEROL [Suspect]
     Active Substance: TOCOPHEROL
     Indication: SCHIZOPHRENIA
     Route: 065
  17. TOCOPHEROL [Suspect]
     Active Substance: TOCOPHEROL
     Indication: SCHIZOAFFECTIVE DISORDER

REACTIONS (89)
  - Decreased appetite [Unknown]
  - Epistaxis [Unknown]
  - Confusional state [Unknown]
  - Cough [Unknown]
  - Depression [Unknown]
  - Hyperhidrosis [Unknown]
  - Nasal dryness [Unknown]
  - Dry skin [Unknown]
  - Eye irritation [Unknown]
  - Salivary hypersecretion [Unknown]
  - Pruritus [Unknown]
  - Memory impairment [Unknown]
  - Sneezing [Unknown]
  - Imprisonment [Unknown]
  - Suicidal ideation [Unknown]
  - Muscle spasms [Unknown]
  - Lip dry [Unknown]
  - Dry mouth [Unknown]
  - Pyrexia [Unknown]
  - Headache [Unknown]
  - Musculoskeletal pain [Unknown]
  - Metabolic disorder [Unknown]
  - Intentional self-injury [Unknown]
  - Akinesia [Unknown]
  - Akathisia [Unknown]
  - Diarrhoea [Unknown]
  - Initial insomnia [Unknown]
  - Somnolence [Unknown]
  - Hypersomnia [Unknown]
  - Libido increased [Unknown]
  - Sleep disorder [Unknown]
  - Irritability [Unknown]
  - Photophobia [Unknown]
  - Arthralgia [Unknown]
  - Nausea [Unknown]
  - Sexual dysfunction [Unknown]
  - Tremor [Unknown]
  - Vomiting [Unknown]
  - Weight increased [Unknown]
  - Weight decreased [Unknown]
  - Neuroleptic malignant syndrome [Unknown]
  - Dystonia [Unknown]
  - Increased appetite [Unknown]
  - Breast pain [Unknown]
  - Chest pain [Unknown]
  - Genital discomfort [Unknown]
  - Heart rate increased [Unknown]
  - Glossodynia [Unknown]
  - Oropharyngeal pain [Unknown]
  - Lymphadenopathy [Unknown]
  - Taste disorder [Unknown]
  - Fatigue [Unknown]
  - Acne [Unknown]
  - Vision blurred [Unknown]
  - Disturbance in attention [Unknown]
  - Tooth disorder [Unknown]
  - Flatulence [Unknown]
  - Mouth ulceration [Unknown]
  - Hypoaesthesia [Unknown]
  - Illusion [Unknown]
  - Hypoacusis [Unknown]
  - Abdominal discomfort [Unknown]
  - Libido decreased [Unknown]
  - Heart rate irregular [Unknown]
  - Nasal congestion [Unknown]
  - Disturbance in sexual arousal [Unknown]
  - Palpitations [Unknown]
  - Muscle rigidity [Unknown]
  - Dyspnoea [Unknown]
  - Skin irritation [Unknown]
  - Anxiety [Unknown]
  - Breast swelling [Unknown]
  - Dysuria [Unknown]
  - Dizziness [Unknown]
  - Terminal insomnia [Unknown]
  - Hair disorder [Unknown]
  - Therapy change [Unknown]
  - Thirst [Unknown]
  - Menstruation irregular [Unknown]
  - Productive cough [Unknown]
  - Restlessness [Unknown]
  - Constipation [Unknown]
  - Dysphagia [Unknown]
  - Ear pain [Unknown]
  - Rhinorrhoea [Unknown]
  - Tinnitus [Unknown]
  - Condition aggravated [Unknown]
  - Parkinsonism [Unknown]
  - Wheezing [Unknown]
